FAERS Safety Report 6856210-7 (Version None)
Quarter: 2010Q3

REPORT INFORMATION
  Report Type: 
  Country: None (occurrence: None)
  Receive Date: 20100719
  Receipt Date: 20100714
  Transmission Date: 20110219
  Serious: Yes (Congenital Anomaly, Other)
  Sender: FDA-Public Use
  Company Number: GB-TEVA-241280ISR

PATIENT
  Age: 2 Week
  Sex: Female

DRUGS (1)
  1. METRONIDAZOLE [Suspect]
     Route: 064

REACTIONS (2)
  - CONGENITAL CARDIOVASCULAR ANOMALY [None]
  - DYSMORPHISM [None]
